FAERS Safety Report 9270816 (Version 1)
Quarter: 2013Q2

REPORT INFORMATION
  Report Type: Spontaneous
  Country: US (occurrence: US)
  Receive Date: 20130503
  Receipt Date: 20130503
  Transmission Date: 20140414
  Serious: No
  Sender: FDA-Public Use
  Company Number: US-ASTRAZENECA-2013SE27849

PATIENT
  Age: 68 Year
  Sex: Female
  Weight: 79.8 kg

DRUGS (2)
  1. OMEPRAZOLE [Suspect]
     Indication: GASTROOESOPHAGEAL REFLUX DISEASE
     Route: 048
  2. SYNTHROID [Concomitant]

REACTIONS (3)
  - Headache [Unknown]
  - Abdominal pain upper [Unknown]
  - Off label use [Unknown]
